FAERS Safety Report 19081559 (Version 2)
Quarter: 2021Q2

REPORT INFORMATION
  Report Type: Report from Study
  Country: CA (occurrence: CA)
  Receive Date: 20210401
  Receipt Date: 20210430
  Transmission Date: 20210717
  Serious: Yes (Death, Other)
  Sender: FDA-Public Use
  Company Number: CA-REGENERON PHARMACEUTICALS, INC.-2021-37991

PATIENT

DRUGS (38)
  1. EYLEA [Suspect]
     Active Substance: AFLIBERCEPT
     Indication: DIABETIC RETINAL OEDEMA
     Dosage: 2 MG, ONCE MONTHLY IN THE LEFT EYE
     Route: 031
     Dates: start: 20180228, end: 20180228
  2. EYLEA [Suspect]
     Active Substance: AFLIBERCEPT
     Dosage: 2 MG, ONCE  IN THE LEFT EYE
     Route: 031
     Dates: start: 20190103, end: 20190103
  3. HUMALOG HD KWIKPEN [Concomitant]
     Indication: PRODUCT USED FOR UNKNOWN INDICATION
     Dosage: 10 UNITS IN THE MORNING, 18 UNITS  AT LUNCH TIME AND 12 UNITS SUPPER TIME
     Route: 058
     Dates: start: 20201203, end: 20210126
  4. SANDOZ LATANOPROST [Concomitant]
     Indication: PRODUCT USED FOR UNKNOWN INDICATION
     Dosage: INSTILL ONE DROP INTO BOTH EYES ONCE DAILY AT BEDTIME
     Dates: start: 20201201, end: 20210105
  5. EYLEA [Suspect]
     Active Substance: AFLIBERCEPT
     Dosage: 2 MG, ONCE MONTHLY IN THE LEFT EYE
     Route: 031
     Dates: start: 20180628, end: 20180628
  6. EYLEA [Suspect]
     Active Substance: AFLIBERCEPT
     Dosage: 2 MG, ONCE MONTHLY IN THE LEFT EYE
     Route: 031
     Dates: start: 20180926, end: 20180926
  7. EYLEA [Suspect]
     Active Substance: AFLIBERCEPT
     Dosage: 2 MG, ONCE  IN THE LEFT EYE
     Route: 031
     Dates: start: 20190923, end: 20190923
  8. AMLODIPINE [Concomitant]
     Active Substance: AMLODIPINE BESYLATE
     Indication: PRODUCT USED FOR UNKNOWN INDICATION
     Dosage: 10 MG, QD AT BEDTIME
     Dates: start: 20201201, end: 20210202
  9. NEORAL [Concomitant]
     Active Substance: CYCLOSPORINE
     Indication: PRODUCT USED FOR UNKNOWN INDICATION
     Dosage: 25 MG, BID MORNING AND NIGHT
     Dates: start: 20201201, end: 20210119
  10. NEORAL [Concomitant]
     Active Substance: CYCLOSPORINE
     Dosage: 25 MG, BID MORNING AND NIGHT
     Dates: start: 20201201, end: 20210119
  11. EYLEA [Suspect]
     Active Substance: AFLIBERCEPT
     Dosage: 2 MG, ONCE  MONTHLY IN THE LEFT EYE
     Route: 031
     Dates: start: 20181114, end: 20181114
  12. EYLEA [Suspect]
     Active Substance: AFLIBERCEPT
     Dosage: UNK
     Dates: start: 20200326, end: 20200329
  13. JANUVIA [Concomitant]
     Active Substance: SITAGLIPTIN PHOSPHATE
     Indication: PRODUCT USED FOR UNKNOWN INDICATION
     Dosage: 25 MG, QD IN THE MORNING
     Dates: start: 20201201, end: 20210202
  14. EYLEA [Suspect]
     Active Substance: AFLIBERCEPT
     Dosage: 2 MG, ONCE MONTHLY IN THE LEFT EYE
     Route: 031
     Dates: start: 20180428, end: 20180428
  15. EYLEA [Suspect]
     Active Substance: AFLIBERCEPT
     Dosage: 2 MG, ONCE MONTHLY IN THE  RIGHT EYE
     Route: 031
     Dates: start: 20180808, end: 20180808
  16. EYLEA [Suspect]
     Active Substance: AFLIBERCEPT
     Dosage: IN THE LEFT EYE, TOTAL NUMBER OF 11 DOSES (10 IN THE LEFT AND 1 IN THE RIGHT EYE), LAST DOSE PRIOR T
     Dates: start: 20210203, end: 20210203
  17. VENLAFAXINE [Concomitant]
     Active Substance: VENLAFAXINE HYDROCHLORIDE
     Indication: PRODUCT USED FOR UNKNOWN INDICATION
     Dosage: 150 MG, QD DURING THE MEAL AT BREAKFAST REGULARLY
     Dates: start: 20210202, end: 20210202
  18. JAMP MAGNESIUM [Concomitant]
     Indication: PRODUCT USED FOR UNKNOWN INDICATION
     Dosage: 30 ML, QD IN THE MORNING
     Dates: start: 20201201, end: 20210126
  19. APO TERAZOSIN [Concomitant]
     Indication: PRODUCT USED FOR UNKNOWN INDICATION
     Dosage: 2 MG, QD AT BEDTIME
     Dates: start: 20201201, end: 20210202
  20. FAMOTIDINE. [Concomitant]
     Active Substance: FAMOTIDINE
     Indication: PRODUCT USED FOR UNKNOWN INDICATION
     Dosage: 20 MG, QD AT BEDTIME
     Dates: start: 20201201, end: 20210202
  21. MYLAN MIRTAZAPINE [Concomitant]
     Indication: PRODUCT USED FOR UNKNOWN INDICATION
     Dosage: 30 MG, QD AT BEDTIME REGULARLY
     Dates: start: 20201201, end: 20210202
  22. DORZOLAMIDE/TIMOLOL SANDOZ [Concomitant]
     Active Substance: DORZOLAMIDE\TIMOLOL
     Indication: PRODUCT USED FOR UNKNOWN INDICATION
     Dosage: INSTIL 1 DROP INTO BOTH EYES TWICE DAILY MORNING AND NIGHT
     Dates: start: 20201201, end: 20210105
  23. LANTUS [Concomitant]
     Active Substance: INSULIN GLARGINE
     Indication: PRODUCT USED FOR UNKNOWN INDICATION
     Dosage: 18 UNITS IN THE MORNING AND 22 UNITS AT BEDTIME REGULARLY
     Route: 058
     Dates: start: 20201201, end: 20201224
  24. GAVISCON [ALGINIC ACID;ALUMINIUM HYDROXIDE;MAGNESIUM TRISILICATE;S [Concomitant]
     Indication: PRODUCT USED FOR UNKNOWN INDICATION
     Dosage: TAKE ONE TABLET 3 TIMES DAILY  AFTER MEALS
     Dates: start: 20190109, end: 20190301
  25. EYLEA [Suspect]
     Active Substance: AFLIBERCEPT
     Dosage: 2 MG, ONCE MONTHLY IN THE LEFT EYE
     Route: 031
     Dates: start: 20180524, end: 20180524
  26. SPIRONOLACTONE. [Concomitant]
     Active Substance: SPIRONOLACTONE
     Indication: PRODUCT USED FOR UNKNOWN INDICATION
     Dosage: TAKE 1/2 TABLET ONCE DAILY IN THE MORNING
     Dates: start: 20201201, end: 20210202
  27. SYNTHROID [Concomitant]
     Active Substance: LEVOTHYROXINE SODIUM
     Indication: PRODUCT USED FOR UNKNOWN INDICATION
     Dosage: 75 ?G, TAKE 1 TABLET IN THE MORNING (ALTERNATE WITH 0.05 MCG
     Dates: start: 20201201, end: 20210202
  28. SYNTHROID [Concomitant]
     Active Substance: LEVOTHYROXINE SODIUM
     Dosage: 50 ?G, TAKE 1 TABLET IN THE MORNING (ALTERNATE WITH 0.75 MCG)
     Dates: start: 20201201, end: 20210202
  29. APO OXAZEPAM [Concomitant]
     Active Substance: OXAZEPAM
     Indication: PRODUCT USED FOR UNKNOWN INDICATION
     Dosage: 30 MG, QD I HOUR BEFOR BEDTIME IF NEEDED
     Dates: start: 20201201, end: 20210202
  30. APO FUROSEMIDE [Concomitant]
     Active Substance: FUROSEMIDE
     Indication: PRODUCT USED FOR UNKNOWN INDICATION
     Dosage: TAKE 1/2 TABLET ONCE DAILY IN THE MORNING
     Dates: start: 20201201, end: 20210202
  31. EYLEA [Suspect]
     Active Substance: AFLIBERCEPT
     Dosage: 2 MG, ONCE MONTHLY IN THE LEFT EYE
     Route: 031
     Dates: start: 20180328, end: 20180328
  32. AURO PANTOPRAZOLE [Concomitant]
     Indication: PRODUCT USED FOR UNKNOWN INDICATION
     Dosage: 40 MG, QD,TAKE 1 TABLET TWICE DAILY 30 MINUTES BEFORE BREAKFAST AND SUPPER TIME
     Dates: start: 20201201, end: 20210202
  33. SANDOZ GLICLAZIDE [Concomitant]
     Indication: PRODUCT USED FOR UNKNOWN INDICATION
     Dosage: 30 MG, QD IN THE MORNING
     Dates: start: 20201201, end: 20210202
  34. FERROUS SULPHATE [FERROUS SULFATE] [Concomitant]
     Active Substance: FERROUS SULFATE
     Indication: PRODUCT USED FOR UNKNOWN INDICATION
     Dosage: 300 MG, QD SUPPER TIME
     Dates: start: 20201201, end: 20210202
  35. BISOPROLOL [Concomitant]
     Active Substance: BISOPROLOL
     Indication: PRODUCT USED FOR UNKNOWN INDICATION
     Dosage: 10 MG, QD IN THE MORNING
     Dates: start: 20201201, end: 20210202
  36. ATORVASTATIN [Concomitant]
     Active Substance: ATORVASTATIN
     Indication: PRODUCT USED FOR UNKNOWN INDICATION
     Dosage: 40 MG, QD AT BEDTIME
     Dates: start: 20201201, end: 20210202
  37. PREDNISONE TEVA [Concomitant]
     Active Substance: PREDNISONE
     Indication: PRODUCT USED FOR UNKNOWN INDICATION
     Dosage: 5 MG, QD IN THE MORNING
     Dates: start: 20201201, end: 20210202
  38. CRANBERRY [VACCINIUM SPP.] [Concomitant]
     Active Substance: CRANBERRY
     Indication: PRODUCT USED FOR UNKNOWN INDICATION
     Dosage: TAKE ONE TABLET ONCE DAILY IN THE MORNING
     Dates: start: 20201201, end: 20201230

REACTIONS (3)
  - Renal failure [Unknown]
  - Death [Fatal]
  - Inappropriate schedule of product administration [Unknown]
